FAERS Safety Report 7475311-6 (Version None)
Quarter: 2011Q2

REPORT INFORMATION
  Report Type: 
  Country: None (occurrence: None)
  Receive Date: 20110505
  Receipt Date: 20110329
  Transmission Date: 20111010
  Serious: Yes (Life-Threatening, Hospitalization)
  Sender: FDA-Public Use
  Company Number: 1000013252

PATIENT
  Age: 79 Year
  Sex: Female
  Weight: 44 kg

DRUGS (1)
  1. ESCITALOPRAM [Suspect]
     Indication: DEPRESSION
     Dosage: 10 MG (10 MG,1 IN 1 D),ORAL
     Route: 048
     Dates: start: 20100324, end: 20100405

REACTIONS (3)
  - DEPRESSED LEVEL OF CONSCIOUSNESS [None]
  - APHASIA [None]
  - HYPONATRAEMIA [None]
